FAERS Safety Report 6693891-5 (Version None)
Quarter: 2010Q2

REPORT INFORMATION
  Report Type: 
  Country: None (occurrence: None)
  Receive Date: 20100423
  Receipt Date: 20100415
  Transmission Date: 20101027
  Serious: Yes (Other)
  Sender: FDA-Public Use
  Company Number: PHHY2010US24491

PATIENT
  Sex: Male

DRUGS (2)
  1. DEFERASIROX [Suspect]
     Indication: IRON OVERLOAD
  2. DESFERAL [Concomitant]

REACTIONS (1)
  - CARDIAC DISORDER [None]
